FAERS Safety Report 4818638-6 (Version None)
Quarter: 2005Q4

REPORT INFORMATION
  Report Type: 
  Country: None (occurrence: None)
  Receive Date: 20051101
  Receipt Date: 20051020
  Transmission Date: 20060501
  Serious: Yes (Other)
  Sender: FDA-Public Use
  Company Number: B0398002A

PATIENT
  Age: 55 Year
  Sex: Female

DRUGS (2)
  1. MELPHALAN TABLET (MELPHALAN) [Suspect]
     Indication: POEMS SYNDROME
     Dosage: ORAL
     Route: 048
     Dates: start: 20000801
  2. PREDNISOLONE [Concomitant]

REACTIONS (4)
  - DRY MOUTH [None]
  - MYELODYSPLASTIC SYNDROME [None]
  - STEM CELL TRANSPLANT [None]
  - XEROPHTHALMIA [None]
